FAERS Safety Report 23756078 (Version 3)
Quarter: 2024Q4

REPORT INFORMATION
  Report Type: Report from Study
  Country: BR (occurrence: BR)
  Receive Date: 20240418
  Receipt Date: 20241104
  Transmission Date: 20250114
  Serious: Yes (Hospitalization)
  Sender: BAYER HEALTHCARE PHARMACEUTICALS INC.
  Company Number: BR-BAYER-2024A034338

PATIENT
  Age: 54 Year
  Sex: Female

DRUGS (4)
  1. NEXAVAR [Suspect]
     Active Substance: SORAFENIB
     Indication: Thyroid cancer
     Dosage: UNK
  2. NEXAVAR [Suspect]
     Active Substance: SORAFENIB
     Indication: Thyroid cancer
     Dosage: 800 MG, QD
     Dates: start: 202402
  3. NEXAVAR [Suspect]
     Active Substance: SORAFENIB
     Indication: Thyroid cancer
     Dosage: 200 MG, QD
     Dates: start: 202404
  4. NEXAVAR [Suspect]
     Active Substance: SORAFENIB
     Indication: Thyroid cancer
     Dosage: 600 MG, QD

REACTIONS (11)
  - Toxicity to various agents [Recovering/Resolving]
  - Rash [Recovering/Resolving]
  - Diarrhoea [Recovered/Resolved]
  - Skin discolouration [None]
  - Blister [Recovering/Resolving]
  - Erythema [None]
  - Pain in extremity [None]
  - Liver disorder [None]
  - Alopecia [Unknown]
  - Platelet count increased [Unknown]
  - Dengue fever [Unknown]

NARRATIVE: CASE EVENT DATE: 20240301
